FAERS Safety Report 5569491-7 (Version None)
Quarter: 2007Q4

REPORT INFORMATION
  Report Type: 
  Country: None (occurrence: None)
  Receive Date: 20071220
  Receipt Date: 20071212
  Transmission Date: 20080405
  Serious: Yes (Death, Life-Threatening)
  Sender: FDA-Public Use
  Company Number: US-JNJFOC-20070701697

PATIENT
  Age: 26 Year
  Sex: Female
  Weight: 127.01 kg

DRUGS (3)
  1. INVEGA [Suspect]
     Indication: SUICIDAL IDEATION
     Route: 048
  2. INVEGA [Suspect]
     Indication: BORDERLINE PERSONALITY DISORDER
     Route: 048
  3. INVEGA [Suspect]
     Indication: BIPOLAR DISORDER
     Route: 048

REACTIONS (4)
  - CARDIAC FAILURE [None]
  - CONVULSION [None]
  - HYPERGLYCAEMIA [None]
  - TORSADE DE POINTES [None]
